FAERS Safety Report 8196197-0 (Version None)
Quarter: 2012Q1

REPORT INFORMATION
  Report Type: 
  Country: None (occurrence: None)
  Receive Date: 20120307
  Receipt Date: 20120307
  Transmission Date: 20120608
  Serious: Yes (Hospitalization)
  Sender: FDA-Public Use
  Company Number: None

PATIENT
  Sex: Female
  Weight: 68.0396 kg

DRUGS (2)
  1. ZANAFLEX [Suspect]
     Dosage: 6MG CAPS ORALLY EVERY 6HRS
     Route: 048
     Dates: start: 20111114
  2. CIPROFLOXACIN [Suspect]
     Dosage: 1 TIME ORALLY EVERY 12 HRS
     Route: 048
     Dates: start: 20111114

REACTIONS (7)
  - AMNESIA [None]
  - TREMOR [None]
  - DISORIENTATION [None]
  - CONFUSIONAL STATE [None]
  - BLOOD PRESSURE IMMEASURABLE [None]
  - PALLOR [None]
  - PULSE ABSENT [None]
